FAERS Safety Report 7285550-5 (Version None)
Quarter: 2011Q1

REPORT INFORMATION
  Report Type: 
  Country: None (occurrence: None)
  Receive Date: 20110121
  Receipt Date: 20080128
  Transmission Date: 20110831
  Serious: No
  Sender: FDA-Public Use
  Company Number: 08-182

PATIENT
  Sex: Male
  Weight: 122.9248 kg

DRUGS (6)
  1. FAZACLO ODT [Suspect]
     Indication: INTERMITTENT EXPLOSIVE DISORDER
     Dosage: 400 MG PO DAILY
     Route: 048
     Dates: start: 20070612, end: 20071119
  2. LYRICA [Concomitant]
  3. LITHIUM [Concomitant]
  4. EFFEXOR XR [Concomitant]
  5. LEXAPRO [Concomitant]
  6. COGENTIN [Concomitant]

REACTIONS (1)
  - HYPERLIPIDAEMIA [None]
